FAERS Safety Report 12799134 (Version 1)
Quarter: 2016Q3

REPORT INFORMATION
  Report Type: Report from Study
  Country: JP (occurrence: JP)
  Receive Date: 20160930
  Receipt Date: 20160930
  Transmission Date: 20161109
  Serious: Yes (Hospitalization)
  Sender: FDA-Public Use
  Company Number: JP-JNJFOC-20160927965

PATIENT
  Age: 52 Year
  Sex: Female
  Weight: 47 kg

DRUGS (4)
  1. YONDELIS [Suspect]
     Active Substance: TRABECTEDIN
     Indication: LEIOMYOSARCOMA METASTATIC
     Dosage: 1.7 MG/BODY; EVERY 3 WEEKS, A 24-HOUR INFUSION
     Route: 041
     Dates: start: 20160125
  2. RANMARK [Concomitant]
     Active Substance: DENOSUMAB
     Indication: LEIOMYOSARCOMA METASTATIC
     Route: 058
     Dates: start: 20150518, end: 20160216
  3. DEXAMETHASONE. [Concomitant]
     Active Substance: DEXAMETHASONE
     Route: 065
     Dates: start: 20160625
  4. YONDELIS [Suspect]
     Active Substance: TRABECTEDIN
     Indication: LEIOMYOSARCOMA METASTATIC
     Dosage: 1.7 MG/BODY; EVERY 3 WEEKS, A 24-HOUR INFUSION
     Route: 041
     Dates: start: 20160215

REACTIONS (5)
  - Pyrexia [Recovering/Resolving]
  - Vomiting [Recovering/Resolving]
  - Abdominal discomfort [Recovering/Resolving]
  - Malaise [Not Recovered/Not Resolved]
  - Malaise [Recovering/Resolving]

NARRATIVE: CASE EVENT DATE: 20160201
